FAERS Safety Report 14775527 (Version 1)
Quarter: 2018Q2

REPORT INFORMATION
  Report Type: Spontaneous
  Country: US (occurrence: US)
  Receive Date: 20180418
  Receipt Date: 20180418
  Transmission Date: 20180711
  Serious: No
  Sender: FDA-Public Use
  Company Number: US-MYLANLABS-2018M1022970

PATIENT
  Sex: Female

DRUGS (1)
  1. ESTRADIOL TRANSDERMAL SYSTEM [Suspect]
     Active Substance: ESTRADIOL
     Indication: PRODUCT USED FOR UNKNOWN INDICATION
     Dosage: 0.25 UNK, BIWEEKLY
     Route: 062
     Dates: start: 20180101

REACTIONS (4)
  - Incorrect dose administered [Not Recovered/Not Resolved]
  - Product adhesion issue [Unknown]
  - Product quality issue [Unknown]
  - Wrong technique in product usage process [Recovered/Resolved]
